FAERS Safety Report 10882130 (Version 2)
Quarter: 2015Q1

REPORT INFORMATION
  Report Type: Spontaneous
  Country: BR (occurrence: BR)
  Receive Date: 20150303
  Receipt Date: 20150330
  Transmission Date: 20150721
  Serious: Yes (Other)
  Sender: FDA-Public Use
  Company Number: BR-SA-2014SA088304

PATIENT
  Age: 38 Year
  Sex: Female

DRUGS (4)
  1. HUMALOG [Concomitant]
     Active Substance: INSULIN LISPRO
  2. NOVORAPID [Concomitant]
     Active Substance: INSULIN ASPART
  3. SOLOSTAR [Concomitant]
     Active Substance: DEVICE
     Dates: start: 2011, end: 2014
  4. LANTUS SOLOSTAR [Suspect]
     Active Substance: INSULIN GLARGINE
     Route: 065
     Dates: start: 2011, end: 201409

REACTIONS (2)
  - Exposure during pregnancy [Unknown]
  - Haemorrhage [Recovered/Resolved]

NARRATIVE: CASE EVENT DATE: 2014
